FAERS Safety Report 7461621-5 (Version None)
Quarter: 2011Q2

REPORT INFORMATION
  Report Type: 
  Country: None (occurrence: None)
  Receive Date: 20110428
  Receipt Date: 20110406
  Transmission Date: 20111010
  Serious: Yes (Other)
  Sender: FDA-Public Use
  Company Number: 20110284

PATIENT
  Age: 58 Year
  Sex: Female

DRUGS (4)
  1. DEXAMETHASONE SODIUM PHOSPHATE [Suspect]
     Indication: SWELLING
     Dosage: DOSE X 3 DOSES
     Dates: start: 20110201, end: 20110320
  2. DEXAMETHASONE SODIUM PHOSPHATE [Suspect]
     Indication: PAIN
     Dosage: DOSE X 3 DOSES
     Dates: start: 20110201, end: 20110320
  3. VITAMIN D [Concomitant]
  4. CALCIUM [Concomitant]

REACTIONS (7)
  - TRIGEMINAL NEURALGIA [None]
  - POST PROCEDURAL HAEMORRHAGE [None]
  - INADEQUATE ANALGESIA [None]
  - EYE PAIN [None]
  - DERMATITIS CONTACT [None]
  - FACIAL PAIN [None]
  - HEADACHE [None]
